FAERS Safety Report 9541956 (Version 1)
Quarter: 2013Q3

REPORT INFORMATION
  Report Type: Spontaneous
  Country: AU (occurrence: AU)
  Receive Date: 20130923
  Receipt Date: 20130923
  Transmission Date: 20140515
  Serious: Yes (Other)
  Sender: FDA-Public Use
  Company Number: PHHY2013AU105144

PATIENT
  Sex: 0

DRUGS (1)
  1. ZOMETA [Suspect]
     Dosage: ONCE EVERY 06 WEEKS

REACTIONS (1)
  - Ankle fracture [Unknown]
